FAERS Safety Report 11331038 (Version 2)
Quarter: 2015Q3

REPORT INFORMATION
  Report Type: Spontaneous
  Country: US (occurrence: US)
  Receive Date: 20150803
  Receipt Date: 20150914
  Transmission Date: 20151125
  Serious: No
  Sender: FDA-Public Use
  Company Number: US-ASTRAZENECA-2015SE71476

PATIENT
  Age: 71 Year
  Sex: Female
  Weight: 64 kg

DRUGS (38)
  1. GABAPENTIN. [Concomitant]
     Active Substance: GABAPENTIN
     Indication: NEUROPATHY PERIPHERAL
     Route: 048
     Dates: start: 20140707, end: 20140926
  2. PROTONIX [Concomitant]
     Active Substance: PANTOPRAZOLE SODIUM
  3. BLOOD PRESSURE MEDICATION [Concomitant]
     Active Substance: UNSPECIFIED INGREDIENT
  4. GABAPENTIN. [Concomitant]
     Active Substance: GABAPENTIN
     Indication: HYPOAESTHESIA
     Route: 048
     Dates: start: 20140707, end: 20140926
  5. OMEGA 3 [Concomitant]
     Active Substance: OMEGA-3 FATTY ACIDS
     Route: 048
  6. DEXAMETHASONE SODIUM PHOSPHATE. [Concomitant]
     Active Substance: DEXAMETHASONE SODIUM PHOSPHATE
     Dosage: 10 MG INTRAVENOUS ONCE SHORT OVER 20 MINUTES IN NS 50 ML
     Dates: start: 20140522, end: 20150717
  7. TRASTUZUMAB [Concomitant]
     Active Substance: TRASTUZUMAB
     Dosage: 130 MG (AT 2 MG/KG) INTRAVENOUS ONCE SHORT OVER 30 MINUTES IN NS 250 ML
     Dates: start: 20140522, end: 20150514
  8. GABAPENTIN. [Concomitant]
     Active Substance: GABAPENTIN
     Indication: MUSCLE RIGIDITY
     Route: 048
     Dates: start: 20140707, end: 20140926
  9. ALPRAZOLAM. [Concomitant]
     Active Substance: ALPRAZOLAM
     Route: 048
  10. VITAMIN D [Concomitant]
     Active Substance: CHOLECALCIFEROL
     Route: 048
  11. PROCHLORPERAZINE MALEATE. [Concomitant]
     Active Substance: PROCHLORPERAZINE MALEATE
     Route: 048
     Dates: start: 20140508
  12. FLAGYL [Concomitant]
     Active Substance: METRONIDAZOLE\METRONIDAZOLE HYDROCHLORIDE
     Route: 048
     Dates: start: 20140902, end: 20140912
  13. HERCEPTIN [Concomitant]
     Active Substance: TRASTUZUMAB
     Indication: HER2 GENE AMPLIFICATION
  14. ALPRAZOLAM. [Concomitant]
     Active Substance: ALPRAZOLAM
     Route: 048
  15. AMLODIPINE BESYLATE. [Concomitant]
     Active Substance: AMLODIPINE BESYLATE
     Route: 048
  16. BENAZEPRIL HCI [Concomitant]
     Route: 048
  17. ACETAMINOPHEN. [Concomitant]
     Active Substance: ACETAMINOPHEN
     Route: 048
     Dates: start: 20140522, end: 20140904
  18. PACLITAXEL. [Concomitant]
     Active Substance: PACLITAXEL
     Dosage: 100 MG (AT 64 MGLM2) INTRAVENOUS ONCE SHORT OVER 60 MINUTES IN NS 250 ML
     Dates: start: 20140522, end: 20150717
  19. VICODIN [Concomitant]
     Active Substance: ACETAMINOPHEN\HYDROCODONE BITARTRATE
     Dosage: AS REQUIRED
     Route: 048
     Dates: end: 20140603
  20. BIOTIN [Concomitant]
     Active Substance: BIOTIN
     Route: 048
  21. PANTOPRAZOLE SODIUM. [Concomitant]
     Active Substance: PANTOPRAZOLE SODIUM
     Indication: GASTROOESOPHAGEAL REFLUX DISEASE
     Route: 048
     Dates: start: 20140508, end: 20140905
  22. ALOXI [Concomitant]
     Active Substance: PALONOSETRON HYDROCHLORIDE
     Dosage: 0.25 MCG INTRAVENOUS DAILY PUSH OVER 30 SECONDS FOR 1 DAY
     Dates: start: 20140522, end: 20140617
  23. FAMOTIDINE. [Concomitant]
     Active Substance: FAMOTIDINE
     Dosage: 20 INTRAVENOUS DAILY SHORT OVER 10 MINUTES FOR 1 DAY
     Dates: start: 20140522, end: 20150731
  24. ARIMIDEX [Suspect]
     Active Substance: ANASTROZOLE
     Indication: AROMATASE INHIBITION THERAPY
     Route: 048
     Dates: start: 20141013
  25. ARIMIDEX [Suspect]
     Active Substance: ANASTROZOLE
     Indication: AROMATASE INHIBITION THERAPY
     Route: 048
     Dates: start: 20150119, end: 20150210
  26. TRAMADOL. [Concomitant]
     Active Substance: TRAMADOL
     Route: 048
  27. DIPHENHYDRAMINE HCI [Concomitant]
     Route: 048
     Dates: start: 20140814, end: 20140904
  28. DIPHENHYDRAMINE HCI [Concomitant]
     Dosage: 25 MG INTRAVENOUS ONCE SHORT OVER 10 MINUTE IN NS 50 ML
     Dates: start: 20140522, end: 20140717
  29. AMOXICILLIN. [Concomitant]
     Active Substance: AMOXICILLIN
     Route: 048
     Dates: end: 20140926
  30. ARIMIDEX [Suspect]
     Active Substance: ANASTROZOLE
     Indication: BREAST CANCER FEMALE
     Route: 048
     Dates: start: 20150119, end: 20150210
  31. AROMASIN [Suspect]
     Active Substance: EXEMESTANE
     Indication: BREAST CANCER FEMALE
     Route: 048
     Dates: start: 20150119, end: 20150618
  32. TAXOL [Concomitant]
     Active Substance: PACLITAXEL
  33. ICY HOT [Concomitant]
     Active Substance: MENTHOL\METHYL SALICYLATE
     Indication: ARTHROPATHY
  34. CALCIUM + D [Concomitant]
     Active Substance: CALCIUM\VITAMIN D
     Route: 048
  35. PANTOPRAZOLE SODIUM. [Concomitant]
     Active Substance: PANTOPRAZOLE SODIUM
     Indication: GASTROOESOPHAGEAL REFLUX DISEASE
     Route: 048
     Dates: start: 2007
  36. AUGMENTIN [Concomitant]
     Active Substance: AMOXICILLIN\CLAVULANATE POTASSIUM
     Route: 048
     Dates: start: 20140731, end: 20140820
  37. SODIUM CHLORIDE. [Concomitant]
     Active Substance: SODIUM CHLORIDE
     Dosage: 250 ML (OF 0.9 %) INTRAVENOUS ONCE INTERMITTENT OVER 60 MINUTES
     Dates: start: 20140522, end: 20150514
  38. ARIMIDEX [Suspect]
     Active Substance: ANASTROZOLE
     Indication: BREAST CANCER FEMALE
     Route: 048
     Dates: start: 20141013

REACTIONS (13)
  - Chondropathy [Unknown]
  - Bone pain [Not Recovered/Not Resolved]
  - Myalgia [Unknown]
  - Weight increased [Unknown]
  - Chondrolysis [Unknown]
  - Peripheral swelling [Unknown]
  - Neuropathy peripheral [Not Recovered/Not Resolved]
  - Pain in extremity [Unknown]
  - Arthralgia [Not Recovered/Not Resolved]
  - Lumbar spinal stenosis [Unknown]
  - Hypoaesthesia [Unknown]
  - Muscle rigidity [Unknown]
  - Myositis [Unknown]

NARRATIVE: CASE EVENT DATE: 2014
